FAERS Safety Report 8941843 (Version 1)
Quarter: 2012Q4

REPORT INFORMATION
  Report Type: 
  Country: FR (occurrence: FR)
  Receive Date: 20121203
  Receipt Date: 20121203
  Transmission Date: 20130627
  Serious: Yes (Death, Other)
  Sender: FDA-Public Use
  Company Number: PHHY2012FR110365

PATIENT
  Age: 13 Year
  Sex: Female

DRUGS (8)
  1. DOXORUBICIN [Suspect]
     Indication: BURKITT^S LYMPHOMA STAGE III
  2. PREDNISOLONE SANDOZ [Suspect]
     Indication: BURKITT^S LYMPHOMA STAGE III
  3. METHOTREXATE [Suspect]
     Indication: BURKITT^S LYMPHOMA STAGE III
  4. CYTARABINE [Suspect]
     Indication: BURKITT^S LYMPHOMA STAGE III
  5. ETOPOSIDE [Suspect]
     Indication: BURKITT^S LYMPHOMA STAGE III
  6. ONCOVIN [Suspect]
     Indication: BURKITT^S LYMPHOMA STAGE III
  7. CYCLOPHOSPHAMIDE [Suspect]
     Indication: BURKITT^S LYMPHOMA STAGE III
  8. RITUXIMAB [Suspect]
     Indication: BURKITT^S LYMPHOMA STAGE III

REACTIONS (3)
  - Malignant neoplasm progression [Fatal]
  - Mucosal inflammation [Unknown]
  - Neutropenia [Unknown]
